FAERS Safety Report 6415935-8 (Version None)
Quarter: 2009Q4

REPORT INFORMATION
  Report Type: 
  Country: None (occurrence: None)
  Receive Date: 20091027
  Receipt Date: 20091020
  Transmission Date: 20100525
  Serious: Yes (Hospitalization)
  Sender: FDA-Public Use
  Company Number: A0813234A

PATIENT
  Sex: Female

DRUGS (1)
  1. AVANDIA [Suspect]
     Indication: DIABETES MELLITUS
     Route: 048
     Dates: start: 20050801, end: 20060801

REACTIONS (4)
  - BLINDNESS [None]
  - HYPERTENSION [None]
  - SYNCOPE [None]
  - TRANSIENT ISCHAEMIC ATTACK [None]
